FAERS Safety Report 23640355 (Version 2)
Quarter: 2024Q2

REPORT INFORMATION
  Report Type: Report from Study
  Country: US (occurrence: US)
  Receive Date: 20240317
  Receipt Date: 20240515
  Transmission Date: 20240716
  Serious: Yes (Hospitalization)
  Sender: FDA-Public Use
  Company Number: US-ABBVIE-5678539

PATIENT
  Age: 65 Year
  Sex: Female

DRUGS (2)
  1. VENCLEXTA [Suspect]
     Active Substance: VENETOCLAX
     Indication: Chronic lymphocytic leukaemia
     Dosage: LAST ADMIN DATE: JAN 2024
     Route: 048
     Dates: start: 20240130
  2. VENCLEXTA [Suspect]
     Active Substance: VENETOCLAX
     Indication: Chronic lymphocytic leukaemia
     Route: 048
     Dates: start: 202401

REACTIONS (4)
  - Limb injury [Unknown]
  - Full blood count abnormal [Not Recovered/Not Resolved]
  - Abdominal pain lower [Unknown]
  - Constipation [Unknown]

NARRATIVE: CASE EVENT DATE: 20240101
